FAERS Safety Report 5102068-6 (Version None)
Quarter: 2006Q3

REPORT INFORMATION
  Report Type: 
  Country: None (occurrence: None)
  Receive Date: 20060907
  Receipt Date: 20060822
  Transmission Date: 20061208
  Serious: Yes (Death, Hospitalization)
  Sender: FDA-Public Use
  Company Number: 2006CT000714

PATIENT
  Age: 41 Year
  Sex: Female
  Weight: 92.0802 kg

DRUGS (10)
  1. VENTAVIS [Suspect]
     Indication: PULMONARY HYPERTENSION
     Dosage: 5 UG;6TO9X/DAY;INH
     Route: 055
     Dates: start: 20060510, end: 20060803
  2. WARFARIN [Concomitant]
  3. PANTOPRAZOLE SODIUM [Concomitant]
  4. XOPENEX [Concomitant]
  5. PREDNISONE [Concomitant]
  6. FOLIC ACID [Concomitant]
  7. OXYGEN [Concomitant]
  8. TYLENOL EXTRA-STRENGTH [Concomitant]
  9. ATROVENT [Concomitant]
  10. POTASSIUM CHLORIDE [Concomitant]

REACTIONS (7)
  - ABDOMINAL DISTENSION [None]
  - ARTHRITIS BACTERIAL [None]
  - DIZZINESS [None]
  - DYSPNOEA [None]
  - ORAL CANDIDIASIS [None]
  - PLEURAL EFFUSION [None]
  - SEPTIC SHOCK [None]
